FAERS Safety Report 14512537 (Version 1)
Quarter: 2018Q1

REPORT INFORMATION
  Report Type: Spontaneous
  Country: IT (occurrence: IT)
  Receive Date: 20180209
  Receipt Date: 20180209
  Transmission Date: 20180509
  Serious: Yes (Life-Threatening)
  Sender: FDA-Public Use
  Company Number: IT-BAYER-2018-020233

PATIENT
  Age: 16 Year
  Sex: Female
  Weight: 55 kg

DRUGS (1)
  1. YASMIN [Suspect]
     Active Substance: DROSPIRENONE\ETHINYL ESTRADIOL
     Indication: POLYCYSTIC OVARIES
     Route: 048

REACTIONS (4)
  - Transverse sinus thrombosis [Recovered/Resolved with Sequelae]
  - Jugular vein thrombosis [Recovered/Resolved with Sequelae]
  - Superior sagittal sinus thrombosis [Recovered/Resolved with Sequelae]
  - Brain oedema [Recovered/Resolved with Sequelae]

NARRATIVE: CASE EVENT DATE: 20170131
